FAERS Safety Report 18431207 (Version 1)
Quarter: 2020Q4

REPORT INFORMATION
  Report Type: Spontaneous
  Country: US (occurrence: US)
  Receive Date: 20201027
  Receipt Date: 20201027
  Transmission Date: 20210114
  Serious: No
  Sender: FDA-Public Use
  Company Number: None

PATIENT
  Age: 58 Year
  Sex: Male
  Weight: 134 kg

DRUGS (18)
  1. FENTANYL (SUBLIMAZE) [Concomitant]
     Dates: start: 20201016, end: 20201021
  2. VANCOMYCIN [Concomitant]
     Active Substance: VANCOMYCIN
     Dates: start: 20201017, end: 20201022
  3. ACETAMINOPHEN. [Concomitant]
     Active Substance: ACETAMINOPHEN
     Dates: start: 20201019, end: 20201021
  4. OMNIPAQUE [Concomitant]
     Active Substance: IOHEXOL
     Dates: start: 20201019, end: 20201019
  5. ENOXAPARIN [Concomitant]
     Active Substance: ENOXAPARIN
     Dates: start: 20201019, end: 20201021
  6. LASIX [Concomitant]
     Active Substance: FUROSEMIDE
     Dates: start: 20201017, end: 20201019
  7. DEXMEDETOMIDINE (PRECEDEX) [Concomitant]
     Dates: start: 20201019, end: 20201021
  8. CISATRACURIUM (NIMBEX) [Concomitant]
     Dates: start: 20201016, end: 20201020
  9. SENNOSIDES. [Concomitant]
     Active Substance: SENNOSIDES
     Dates: start: 20201017, end: 20201020
  10. DOCUSATE [Concomitant]
     Active Substance: DOCUSATE
     Dates: start: 20201017, end: 20201021
  11. REMDESIVIR. [Suspect]
     Active Substance: REMDESIVIR
     Indication: COVID-19
     Route: 042
     Dates: start: 20201016, end: 20201020
  12. VERSED [Concomitant]
     Active Substance: MIDAZOLAM HYDROCHLORIDE
     Dates: start: 20201019, end: 20201021
  13. PROTONIX [Concomitant]
     Active Substance: PANTOPRAZOLE SODIUM
     Dates: start: 20201016, end: 20201019
  14. OXYCODONE [Concomitant]
     Active Substance: OXYCODONE
     Dates: start: 20201017, end: 20201024
  15. DEXAMETHASONE. [Concomitant]
     Active Substance: DEXAMETHASONE
     Dates: start: 20201017, end: 20201024
  16. LOPRESSOR [Concomitant]
     Active Substance: METOPROLOL TARTRATE
     Dates: start: 20201017, end: 20201024
  17. HEPARIN [Concomitant]
     Active Substance: HEPARIN SODIUM
     Dates: start: 20201016, end: 20201018
  18. ZOSYN [Concomitant]
     Active Substance: PIPERACILLIN SODIUM\TAZOBACTAM SODIUM
     Dates: start: 20201016, end: 20201024

REACTIONS (2)
  - Respiratory failure [None]
  - Glomerular filtration rate decreased [None]

NARRATIVE: CASE EVENT DATE: 20201020
